FAERS Safety Report 10420516 (Version 1)
Quarter: 2014Q3

REPORT INFORMATION
  Report Type: Spontaneous
  Country: US (occurrence: None)
  Receive Date: 20140709
  Receipt Date: 20140709
  Transmission Date: 20150326
  Serious: Yes (Other)
  Sender: FDA-Public Use
  Company Number: 1946245

PATIENT
  Age: 68 Year
  Sex: Female
  Weight: 83.9 kg

DRUGS (2)
  1. (CARBOPLATIN) [Concomitant]
     Active Substance: CARBOPLATIN
  2. PACLITAXEL ( PACLITAXEL) [Suspect]
     Active Substance: PACLITAXEL
     Indication: NEOPLASM MALIGNANT
     Dosage: 340 MG MILLIGRAM (S) , UNKNOWN, INTRAVENOUS
     Route: 042
     Dates: start: 20130819

REACTIONS (1)
  - Flushing [None]
